FAERS Safety Report 25115417 (Version 1)
Quarter: 2025Q1

REPORT INFORMATION
  Report Type: Report from Study
  Country: PR (occurrence: PR)
  Receive Date: 20250324
  Receipt Date: 20250324
  Transmission Date: 20250408
  Serious: Yes (Other)
  Sender: BAYER HEALTHCARE PHARMACEUTICALS INC.
  Company Number: PR-BAYER-2025A030230

PATIENT
  Age: 81 Year
  Sex: Female

DRUGS (2)
  1. ADEMPAS [Suspect]
     Active Substance: RIOCIGUAT
     Indication: Pulmonary arterial hypertension
     Route: 048
  2. ADEMPAS [Suspect]
     Active Substance: RIOCIGUAT
     Indication: Pulmonary arterial hypertension
     Dosage: 1.5 MG, TID
     Route: 048
     Dates: start: 202502

REACTIONS (15)
  - Blood pressure diastolic decreased [None]
  - Tachycardia [None]
  - Periorbital oedema [None]
  - Oedema peripheral [None]
  - Nausea [None]
  - Headache [None]
  - Headache [None]
  - Face oedema [None]
  - Eye disorder [None]
  - Tongue disorder [None]
  - Musculoskeletal discomfort [None]
  - Headache [Not Recovered/Not Resolved]
  - Hypersensitivity [None]
  - Tracheal oedema [None]
  - Gingival pain [None]

NARRATIVE: CASE EVENT DATE: 20250227
